FAERS Safety Report 24058035 (Version 1)
Quarter: 2024Q3

REPORT INFORMATION
  Report Type: Other
  Country: MY (occurrence: MY)
  Receive Date: 20240707
  Receipt Date: 20240707
  Transmission Date: 20241016
  Serious: Yes (Life-Threatening, Hospitalization)
  Sender: B BRAUN
  Company Number: MY-B.Braun Medical Inc.-2158893

PATIENT
  Age: 80 Year
  Sex: Male

DRUGS (4)
  1. HEPARIN SODIUM IN DEXTROSE [Suspect]
     Active Substance: HEPARIN SODIUM
     Indication: Prophylaxis
     Route: 013
  2. HEPARIN SODIUM [Suspect]
     Active Substance: HEPARIN SODIUM
  3. CLOPIDOGREL [Suspect]
     Active Substance: CLOPIDOGREL BISULFATE
  4. ASPIRIN [Suspect]
     Active Substance: ASPIRIN

REACTIONS (3)
  - Haematoma [Not Recovered/Not Resolved]
  - Compartment syndrome [Not Recovered/Not Resolved]
  - Haemoglobin decreased [Not Recovered/Not Resolved]
